FAERS Safety Report 6355842-2 (Version None)
Quarter: 2009Q3

REPORT INFORMATION
  Report Type: 
  Country: None (occurrence: None)
  Receive Date: 20090911
  Receipt Date: 20090911
  Transmission Date: 20100115
  Serious: No
  Sender: FDA-Public Use
  Company Number: None

PATIENT
  Sex: Female

DRUGS (1)
  1. DIVALPROEX EXTENDED-RELEASE [Suspect]
     Dosage: 500MG TWO QHS PO
     Route: 048

REACTIONS (1)
  - NO ADVERSE EVENT [None]
